FAERS Safety Report 4830957-6 (Version None)
Quarter: 2005Q4

REPORT INFORMATION
  Report Type: 
  Country: None (occurrence: None)
  Receive Date: 20051114
  Receipt Date: 20051031
  Transmission Date: 20060501
  Serious: Yes (Death, Life-Threatening, Hospitalization, Other)
  Sender: FDA-Public Use
  Company Number: 2005EU002467

PATIENT
  Age: 55 Year
  Sex: Male
  Weight: 65 kg

DRUGS (6)
  1. FK506(TACROLIMUS) CAPSULE [Suspect]
     Indication: GRAFT VERSUS HOST DISEASE
     Dosage: 1.50 MG, UID/QD, ORAL
     Route: 048
     Dates: start: 20050825, end: 20051022
  2. POSACONAZOLE [Suspect]
     Indication: MUCORMYCOSIS
     Dosage: D, ORAL
     Route: 048
     Dates: start: 20050502, end: 20051023
  3. AMBISOME [Suspect]
     Indication: FUNGAL INFECTION
     Dosage: 200.00 MG, QOD, IV NOS
     Route: 042
     Dates: start: 20050828, end: 20051021
  4. CIPROFLOXACIN [Suspect]
     Indication: PYREXIA
     Dosage: 400.00 MG, BID, IV NOS
     Route: 042
     Dates: start: 20051018, end: 20051022
  5. OMEPRAZOLE [Suspect]
     Indication: PROPHYLAXIS
     Dosage: 40.00 MG, BID, IV NOS
     Route: 042
     Dates: start: 20051019, end: 20051022
  6. TOBRAMYCIN [Concomitant]

REACTIONS (11)
  - ANURIA [None]
  - ASPIRATION [None]
  - BACTERIAL SEPSIS [None]
  - CHOLESTASIS [None]
  - CIRCULATORY COLLAPSE [None]
  - CONDITION AGGRAVATED [None]
  - CONVULSION [None]
  - MULTI-ORGAN FAILURE [None]
  - RENAL FAILURE ACUTE [None]
  - SEPTIC SHOCK [None]
  - TOXIC SHOCK SYNDROME [None]
